FAERS Safety Report 7712498-1 (Version None)
Quarter: 2011Q3

REPORT INFORMATION
  Report Type: 
  Country: None (occurrence: None)
  Receive Date: 20110826
  Receipt Date: 20110826
  Transmission Date: 20111222
  Serious: Yes (Other)
  Sender: FDA-Public Use
  Company Number: None

PATIENT
  Age: 42 Year
  Sex: Male
  Weight: 113.39 kg

DRUGS (1)
  1. REMICADE [Suspect]
     Indication: PSORIATIC ARTHROPATHY
     Dosage: UNKNOWN
     Route: 042
     Dates: start: 20040501, end: 20110824

REACTIONS (5)
  - MUSCULAR WEAKNESS [None]
  - ARTHRALGIA [None]
  - FALL [None]
  - PAIN IN EXTREMITY [None]
  - DYSSTASIA [None]
